FAERS Safety Report 15697613 (Version 5)
Quarter: 2019Q4

REPORT INFORMATION
  Report Type: Report from Study
  Country: US (occurrence: US)
  Receive Date: 20181207
  Receipt Date: 20191214
  Transmission Date: 20200122
  Serious: No
  Sender: FDA-Public Use
  Company Number: PHEH2018US050698

PATIENT
  Sex: Male
  Weight: 48.9 kg

DRUGS (2)
  1. ILARIS [Suspect]
     Active Substance: CANAKINUMAB
     Indication: CRYOPYRIN ASSOCIATED PERIODIC SYNDROME
     Dosage: 120 MG, Q2MO
     Route: 058
  2. ILARIS [Suspect]
     Active Substance: CANAKINUMAB
     Dosage: 150 MG Q2MO
     Route: 058

REACTIONS (3)
  - Sinusitis [Unknown]
  - Malaise [Recovering/Resolving]
  - Pharyngitis streptococcal [Unknown]
